FAERS Safety Report 7149966-X (Version None)
Quarter: 2010Q4

REPORT INFORMATION
  Report Type: 
  Country: None (occurrence: None)
  Receive Date: 20101210
  Receipt Date: 20101202
  Transmission Date: 20110411
  Serious: No
  Sender: FDA-Public Use
  Company Number: US-BIOGENIDEC-2010BI042924

PATIENT
  Sex: Female

DRUGS (1)
  1. AVONEX [Suspect]
     Indication: MULTIPLE SCLEROSIS
     Route: 030
     Dates: start: 20101101

REACTIONS (6)
  - DEPRESSED MOOD [None]
  - DIZZINESS [None]
  - DYSPNOEA [None]
  - FRUSTRATION [None]
  - MULTIPLE SCLEROSIS RELAPSE [None]
  - PAIN [None]
